FAERS Safety Report 4278590-1 (Version None)
Quarter: 2004Q1

REPORT INFORMATION
  Report Type: 
  Country: None (occurrence: None)
  Receive Date: 20040122
  Receipt Date: 20040122
  Transmission Date: 20041129
  Serious: Yes (Hospitalization)
  Sender: FDA-Public Use
  Company Number: None

PATIENT
  Age: 71 Year
  Sex: Male
  Weight: 64.8644 kg

DRUGS (2)
  1. PROCRIT 40,000 ORTHO BIOTECH [Suspect]
     Indication: ANAEMIA
     Dosage: 40,000 WEEKLY SUBCUTANEOUS
     Route: 058
     Dates: start: 20031229, end: 20040430
  2. PROCRIT 40,000 ORTHO BIOTECH [Suspect]
     Indication: CARCINOMA
     Dosage: 40,000 WEEKLY SUBCUTANEOUS
     Route: 058
     Dates: start: 20031229, end: 20040430

REACTIONS (2)
  - RADIATION DYSPHAGIA [None]
  - RADIATION OESOPHAGITIS [None]
